FAERS Safety Report 12667255 (Version 1)
Quarter: 2016Q3

REPORT INFORMATION
  Report Type: Spontaneous
  Country: US (occurrence: None)
  Receive Date: 20160818
  Receipt Date: 20160818
  Transmission Date: 20161109
  Serious: No
  Sender: FDA-Public Use
  Company Number: None

PATIENT
  Age: 26 Year
  Sex: Female
  Weight: 57.61 kg

DRUGS (1)
  1. MARCAINE [Suspect]
     Active Substance: BUPIVACAINE HYDROCHLORIDE
     Indication: CAESAREAN SECTION
     Dosage: 2 ML 1 DOSE EPIDURAL
     Route: 008
     Dates: start: 20160812, end: 20160812

REACTIONS (3)
  - Discomfort [None]
  - Unwanted awareness during anaesthesia [None]
  - Drug effect incomplete [None]

NARRATIVE: CASE EVENT DATE: 20160812
